FAERS Safety Report 8295794-1 (Version None)
Quarter: 2012Q2

REPORT INFORMATION
  Report Type: 
  Country: None (occurrence: None)
  Receive Date: 20120418
  Receipt Date: 20120416
  Transmission Date: 20120825
  Serious: No
  Sender: FDA-Public Use
  Company Number: US-BAYER-2012-037479

PATIENT
  Age: 76 Year
  Sex: Male

DRUGS (8)
  1. LEVITRA [Suspect]
     Indication: PENILE VASCULAR DISORDER
     Dosage: 20MG AS NEEDED
     Route: 048
     Dates: start: 20100101, end: 20120416
  2. THYROID TAB [Concomitant]
  3. MULTIPLE VITAMINS [Concomitant]
  4. ZOCOR [Concomitant]
  5. VITAMIN D [Concomitant]
  6. FISH OIL [Concomitant]
  7. DICYCLOMINE [Concomitant]
  8. B COMPLEX [B3,B6,B2,B1 HCL] [Concomitant]

REACTIONS (3)
  - FEELING HOT [None]
  - NASAL CONGESTION [None]
  - DYSPEPSIA [None]
